FAERS Safety Report 8367569-6 (Version None)
Quarter: 2012Q1

REPORT INFORMATION
  Report Type: 
  Country: None (occurrence: None)
  Receive Date: 20120323
  Receipt Date: 20110809
  Transmission Date: 20120608
  Serious: Yes (Hospitalization, Disabling)
  Sender: FDA-Public Use
  Company Number: 163-21880-11080050

PATIENT
  Age: 73 Year
  Sex: Male
  Weight: 65.8 kg

DRUGS (1)
  1. REVLIMID [Suspect]
     Indication: MULTIPLE MYELOMA
     Dosage: 15 MG, DALY 3 WEEKS ON, 1 WEEK OFF, PO
     Route: 048
     Dates: start: 20110715, end: 20110725

REACTIONS (4)
  - ABASIA [None]
  - ASTHENIA [None]
  - FALL [None]
  - CEREBRAL THROMBOSIS [None]
